FAERS Safety Report 6505162-8 (Version None)
Quarter: 2009Q4

REPORT INFORMATION
  Report Type: 
  Country: None (occurrence: None)
  Receive Date: 20091218
  Receipt Date: 20091210
  Transmission Date: 20100525
  Serious: Yes (Other)
  Sender: FDA-Public Use
  Company Number: PHHY2009GB55448

PATIENT
  Sex: Male

DRUGS (1)
  1. DICLOFENAC [Suspect]
     Dosage: 100 MG DAILY
     Route: 048

REACTIONS (4)
  - ANKLE FRACTURE [None]
  - FALL [None]
  - HEAD INJURY [None]
  - SYNCOPE [None]
